FAERS Safety Report 9122731 (Version 2)
Quarter: 2013Q2

REPORT INFORMATION
  Report Type: Report from Study
  Country: DE (occurrence: DE)
  Receive Date: 20130227
  Receipt Date: 20130416
  Transmission Date: 20140414
  Serious: Yes (Hospitalization)
  Sender: FDA-Public Use
  Company Number: DE-UCBSA-078851

PATIENT
  Age: 25 Year
  Sex: Female

DRUGS (5)
  1. VIMPAT [Suspect]
     Indication: PARTIAL SEIZURES
     Dosage: 50MG/DAY
     Dates: start: 20110216, end: 2011
  2. VIMPAT [Suspect]
     Indication: PARTIAL SEIZURES
     Dosage: 200MG/DAY
     Dates: start: 2011, end: 20110914
  3. OXCARBAZEPINE [Concomitant]
     Indication: EPILEPSY
     Dosage: 1500MG/DAY
  4. OXCARBAZEPINE [Concomitant]
     Indication: EPILEPSY
     Dosage: 900MG/DAY
  5. ZONISAMIDE [Concomitant]
     Indication: EPILEPSY
     Dosage: 100MG/DAY

REACTIONS (2)
  - Epilepsy [Unknown]
  - Fatigue [Unknown]
